FAERS Safety Report 13155442 (Version 1)
Quarter: 2017Q1

REPORT INFORMATION
  Report Type: Spontaneous
  Country: JP (occurrence: JP)
  Receive Date: 20170126
  Receipt Date: 20170126
  Transmission Date: 20170428
  Serious: Yes (Other)
  Sender: FDA-Public Use
  Company Number: JP-MYLANLABS-2017M1004525

PATIENT

DRUGS (2)
  1. ETOPOSIDE. [Suspect]
     Active Substance: ETOPOSIDE
     Indication: SMALL CELL LUNG CANCER METASTATIC
     Dosage: 100MG/M2
     Route: 050
  2. CISPLATIN. [Suspect]
     Active Substance: CISPLATIN
     Indication: SMALL CELL LUNG CANCER METASTATIC
     Dosage: 80MG/M2
     Route: 050

REACTIONS (5)
  - Renal infarct [Recovered/Resolved]
  - Bone marrow failure [Unknown]
  - Thrombosis [Recovered/Resolved]
  - Splenic infarction [Recovered/Resolved]
  - Intestinal ischaemia [Recovered/Resolved]
